FAERS Safety Report 8514356-1 (Version None)
Quarter: 2012Q3

REPORT INFORMATION
  Report Type: 
  Country: None (occurrence: None)
  Receive Date: 20120717
  Receipt Date: 20120710
  Transmission Date: 20120928
  Serious: Yes (Hospitalization)
  Sender: FDA-Public Use
  Company Number: US-JNJFOC-20120705707

PATIENT
  Sex: Female
  Weight: 60 kg

DRUGS (7)
  1. REMICADE [Suspect]
     Indication: CROHN'S DISEASE
     Route: 042
     Dates: start: 20081004
  2. REMICADE [Suspect]
     Route: 042
     Dates: start: 20120703
  3. HUMIRA [Concomitant]
     Indication: CROHN'S DISEASE
     Dates: start: 20090101, end: 20120101
  4. BACTRIM [Concomitant]
  5. ANTIBIOTICS [Concomitant]
     Indication: INFLAMMATORY BOWEL DISEASE
  6. ZOFRAN [Concomitant]
  7. MERCAPTOPURINE [Concomitant]

REACTIONS (2)
  - CROHN'S DISEASE [None]
  - CONDITION AGGRAVATED [None]
